FAERS Safety Report 5308562-7 (Version None)
Quarter: 2007Q2

REPORT INFORMATION
  Report Type: 
  Country: None (occurrence: None)
  Receive Date: 20070423
  Receipt Date: 20070423
  Transmission Date: 20071010
  Serious: No
  Sender: FDA-Public Use
  Company Number: None

PATIENT
  Age: 37 Year
  Sex: Male
  Weight: 77.1115 kg

DRUGS (1)
  1. CELEXA [Suspect]
     Indication: DEPRESSION
     Dates: start: 19990901, end: 20010801

REACTIONS (3)
  - APATHY [None]
  - DRUG WITHDRAWAL SYNDROME [None]
  - PARAESTHESIA [None]
